FAERS Safety Report 15990623 (Version 1)
Quarter: 2019Q1

REPORT INFORMATION
  Report Type: Spontaneous
  Country: US (occurrence: US)
  Receive Date: 20190125
  Receipt Date: 20190125
  Transmission Date: 20190418
  Serious: Yes (Death)
  Sender: FDA-Public Use
  Company Number: None

PATIENT
  Age: 29 Year
  Sex: Male

DRUGS (32)
  1. LECITHN [Concomitant]
  2. ASTRAGALUS POW ROOT [Concomitant]
  3. CRANBERRY. [Concomitant]
     Active Substance: CRANBERRY
  4. TORSEMIDE. [Concomitant]
     Active Substance: TORSEMIDE
  5. PREVACID [Concomitant]
     Active Substance: LANSOPRAZOLE
  6. NYSTATIN SUS [Concomitant]
  7. NUTRISOURCE POW FIBER [Concomitant]
  8. PULMOZYME [Suspect]
     Active Substance: DORNASE ALFA
     Indication: CYSTIC FIBROSIS
     Route: 055
     Dates: end: 201901
  9. METFORMIN [Concomitant]
     Active Substance: METFORMIN HYDROCHLORIDE
  10. ZINC CHLORID GRA [Concomitant]
  11. VITAMIN D3 [Concomitant]
     Active Substance: CHOLECALCIFEROL
  12. SPIRONOLACT [Concomitant]
     Active Substance: SPIRONOLACTONE
  13. POLYSACCHARI [Concomitant]
  14. MACROLIPID EMU [Concomitant]
  15. HIZENTRA INJ [Concomitant]
  16. ULTRA B-100 TAB COMPLEX [Concomitant]
  17. FOLIC ACID. [Concomitant]
     Active Substance: FOLIC ACID
  18. QVAR AER [Concomitant]
  19. OSTERA [Concomitant]
  20. CARNITOR [Concomitant]
     Active Substance: LEVOCARNITINE
  21. XOPENEX HFA AER [Concomitant]
  22. SODIUM CHLOR [Concomitant]
     Active Substance: SODIUM CHLORIDE
  23. PROBIOTIC CAP [Concomitant]
  24. LACTULOSE SOL [Concomitant]
  25. GLUTATHONE POW REDUCED [Concomitant]
  26. TOBI [Suspect]
     Active Substance: TOBRAMYCIN
     Indication: CYSTIC FIBROSIS
     Dosage: OTHER FREQUENCY:Q12HRS-14D ON 14 O;?
     Route: 055
     Dates: end: 201901
  27. PULMOZYME SOL [Concomitant]
  28. NADH POW [Concomitant]
  29. METHYLCOBALA POW [Concomitant]
  30. LEVOTHYROXIN [Concomitant]
     Active Substance: LEVOTHYROXINE
  31. DHA [Concomitant]
     Active Substance: DIETARY SUPPLEMENT
  32. BENADRYL ALL LIQ [Concomitant]

REACTIONS (1)
  - Death [None]

NARRATIVE: CASE EVENT DATE: 20190124
